FAERS Safety Report 9630781 (Version 1)
Quarter: 2013Q4

REPORT INFORMATION
  Report Type: Spontaneous
  Country: US (occurrence: None)
  Receive Date: 20131016
  Receipt Date: 20131016
  Transmission Date: 20140711
  Serious: Yes (Hospitalization)
  Sender: FDA-Public Use
  Company Number: 13-10-004

PATIENT
  Age: 71 Year
  Sex: Female
  Weight: 56.25 kg

DRUGS (15)
  1. ZOLEDRONIC [Suspect]
     Dosage: IN A 100ML
     Dates: start: 20130829
  2. ATIVAN [Concomitant]
  3. TUMS [Concomitant]
  4. PIETAL [Concomitant]
  5. VITAMIN D [Concomitant]
  6. FESO4 [Concomitant]
  7. TEPPRA [Concomitant]
  8. MVE [Concomitant]
  9. LISINOPRIL [Concomitant]
  10. NIACIN [Concomitant]
  11. OMEPRAZOLE [Concomitant]
  12. SIMVASTATIN [Concomitant]
  13. OXYBUTYRIN [Concomitant]
  14. VITAMIN B12 [Concomitant]
  15. SELACE [Concomitant]

REACTIONS (3)
  - Convulsion [None]
  - Nausea [None]
  - Vomiting [None]
